FAERS Safety Report 20718022 (Version 22)
Quarter: 2023Q4

REPORT INFORMATION
  Report Type: Spontaneous
  Country: GB (occurrence: GB)
  Receive Date: 20220418
  Receipt Date: 20231212
  Transmission Date: 20240110
  Serious: Yes (Hospitalization, Other)
  Sender: FDA-Public Use
  Company Number: GB-CIPLA (EU) LIMITED-2022GB02419

PATIENT

DRUGS (62)
  1. CETIRIZINE [Suspect]
     Active Substance: CETIRIZINE HYDROCHLORIDE
     Indication: Product used for unknown indication
     Dosage: UNK
     Route: 048
     Dates: start: 20220301
  2. CYCLOPHOSPHAMIDE [Suspect]
     Active Substance: CYCLOPHOSPHAMIDE
     Indication: Recurrent cancer
     Dosage: 250 MG/M2, 21D (MAXIMUM 5 DAYS EVERY 21 DAYS)
     Route: 042
     Dates: start: 20220221
  3. CYCLOPHOSPHAMIDE [Suspect]
     Active Substance: CYCLOPHOSPHAMIDE
     Indication: Refractory cancer
     Dosage: UNK
     Route: 065
  4. DOCUSATE SODIUM [Suspect]
     Active Substance: DOCUSATE SODIUM
     Indication: Product used for unknown indication
     Dosage: UNK
     Route: 065
     Dates: start: 20220301, end: 202203
  5. DOCUSATE SODIUM [Suspect]
     Active Substance: DOCUSATE SODIUM
     Dosage: UNK
     Route: 065
     Dates: start: 20220308
  6. DOCUSATE SODIUM [Suspect]
     Active Substance: DOCUSATE SODIUM
     Dosage: UNK
     Route: 065
  7. DOXORUBICIN HYDROCHLORIDE [Suspect]
     Active Substance: DOXORUBICIN HYDROCHLORIDE
     Indication: Neoplasm
     Dosage: UNK
     Route: 065
     Dates: start: 20200430, end: 20200818
  8. DOXORUBICIN HYDROCHLORIDE [Suspect]
     Active Substance: DOXORUBICIN HYDROCHLORIDE
     Indication: Refractory cancer
     Dosage: UNK
     Route: 065
  9. INSTILLAGEL [Suspect]
     Active Substance: CHLORHEXIDINE GLUCONATE\LIDOCAINE HYDROCHLORIDE
     Indication: Product used for unknown indication
     Dosage: UNK
     Route: 065
  10. INSTILLAGEL [Suspect]
     Active Substance: CHLORHEXIDINE GLUCONATE\LIDOCAINE HYDROCHLORIDE
     Dosage: UNK
     Route: 065
  11. ORAMORPH SR SUSTAINED RELEASE [Suspect]
     Active Substance: MORPHINE SULFATE
     Indication: Product used for unknown indication
     Dosage: UNK
     Route: 065
  12. CETIRIZINE HYDROCHLORIDE [Suspect]
     Active Substance: CETIRIZINE HYDROCHLORIDE
     Indication: Product used for unknown indication
     Dosage: UNK, ZIRTEK ALLERGY
     Route: 048
     Dates: start: 20220301
  13. TOPOTECAN HYDROCHLORIDE [Suspect]
     Active Substance: TOPOTECAN HYDROCHLORIDE
     Indication: Refractory cancer
     Dosage: 0. 75 MG/M2, 21D (MAXIMUM 5 DAYS EVERY 21 DAYS)
     Route: 042
     Dates: start: 20220221
  14. TOPOTECAN HYDROCHLORIDE [Suspect]
     Active Substance: TOPOTECAN HYDROCHLORIDE
     Indication: Recurrent cancer
  15. VENETOCLAX [Suspect]
     Active Substance: VENETOCLAX
     Indication: Recurrent cancer
     Dosage: 800 MILLIGRAM, QD
     Route: 048
     Dates: start: 20220218
  16. VENETOCLAX [Suspect]
     Active Substance: VENETOCLAX
     Indication: Refractory cancer
     Dosage: UNK
     Route: 065
  17. HYDROCORTISONE ACETATE\LIDOCAINE HYDROCHLORIDE [Suspect]
     Active Substance: HYDROCORTISONE ACETATE\LIDOCAINE HYDROCHLORIDE
     Indication: Adverse event
     Dosage: UNK
     Route: 065
  18. HYDROCORTISONE ACETATE\LIDOCAINE HYDROCHLORIDE [Suspect]
     Active Substance: HYDROCORTISONE ACETATE\LIDOCAINE HYDROCHLORIDE
     Dosage: UNK
     Route: 065
  19. LIDOCAINE HYDROCHLORIDE [Suspect]
     Active Substance: DEXTROSE MONOHYDRATE\EPINEPHRINE\EPINEPHRINE BITARTRATE\LIDOCAINE\LIDOCAINE HYDROCHLORIDE\LIDOCAINE
     Indication: Product used for unknown indication
     Dosage: UNK
     Route: 065
  20. TOPOTECAN HYDROCHLORIDE [Suspect]
     Active Substance: TOPOTECAN HYDROCHLORIDE
     Indication: Refractory cancer
     Dosage: 0. 75 MG/M2, 21D (MAXIMUM 5 DAYS EVERY 21 DAYS)
     Route: 042
     Dates: start: 20220221
  21. HYDROCORTISONE [Suspect]
     Active Substance: HYDROCORTISONE
     Indication: Adverse event
     Dosage: UNK
     Route: 065
  22. CYCLOPHOSPHAMIDE [Suspect]
     Active Substance: CYCLOPHOSPHAMIDE
     Indication: Recurrent cancer
     Dosage: 250 MILLIGRAM/SQ. METER, 21 D (MAXIMUM 5 DAYS EVERY 21 DAYS)
     Route: 042
     Dates: start: 20220221
  23. CYCLOPHOSPHAMIDE [Suspect]
     Active Substance: CYCLOPHOSPHAMIDE
     Indication: Refractory cancer
     Dosage: UNK
     Route: 065
  24. MESNA [Suspect]
     Active Substance: MESNA
     Indication: Neoplasm
     Dosage: UNK
     Route: 065
     Dates: start: 20170515, end: 20171118
  25. MORPHINE SULFATE [Suspect]
     Active Substance: MORPHINE SULFATE
     Indication: Product used for unknown indication
     Dosage: UNK
     Route: 065
  26. DOCUSATE SODIUM [Suspect]
     Active Substance: DOCUSATE SODIUM
     Indication: Product used for unknown indication
     Dosage: UNK
     Route: 065
     Dates: start: 20220301, end: 202203
  27. DOCUSATE SODIUM [Suspect]
     Active Substance: DOCUSATE SODIUM
     Indication: Product used for unknown indication
     Dosage: UNK
     Route: 050
     Dates: start: 20220301, end: 202203
  28. DOCUSATE SODIUM [Suspect]
     Active Substance: DOCUSATE SODIUM
     Dosage: UNK
     Route: 050
     Dates: start: 20220308
  29. IFOSFAMIDE [Suspect]
     Active Substance: IFOSFAMIDE
     Indication: Neoplasm
     Dosage: UNK
     Route: 065
     Dates: start: 20170519, end: 20171118
  30. IFOSFAMIDE [Suspect]
     Active Substance: IFOSFAMIDE
     Dosage: UNK
     Route: 065
  31. MESNA [Suspect]
     Active Substance: MESNA
     Indication: Neoplasm
     Dosage: UNK
     Route: 065
     Dates: start: 20170515, end: 20171118
  32. DOXORUBICIN HYDROCHLORIDE [Suspect]
     Active Substance: DOXORUBICIN HYDROCHLORIDE
     Indication: Neoplasm
     Dosage: UNK
     Route: 065
     Dates: start: 20200430, end: 20220818
  33. DOXORUBICIN HYDROCHLORIDE [Suspect]
     Active Substance: DOXORUBICIN HYDROCHLORIDE
     Dosage: UNK
     Route: 065
  34. DOXIL [Suspect]
     Active Substance: DOXORUBICIN HYDROCHLORIDE
     Indication: Neoplasm
     Dosage: UNK
     Route: 065
     Dates: start: 20200430, end: 20200818
  35. SODIUM CHLORIDE [Suspect]
     Active Substance: SODIUM CHLORIDE
     Indication: Product used for unknown indication
     Dosage: UNK, THERAPY END DATE 2022
     Route: 065
     Dates: start: 20220301, end: 2022
  36. SODIUM CHLORIDE [Suspect]
     Active Substance: SODIUM CHLORIDE
     Dosage: UNK
     Route: 065
     Dates: start: 20220308
  37. AMOXICILLIN\CLAVULANATE POTASSIUM [Suspect]
     Active Substance: AMOXICILLIN\CLAVULANATE POTASSIUM
     Indication: Haemorrhoids
     Dosage: UNK, AN UNSPECIFIED DOSE AND FREQUENCY
     Route: 065
     Dates: start: 20220331
  38. AMOXICILLIN\CLAVULANATE POTASSIUM [Suspect]
     Active Substance: AMOXICILLIN\CLAVULANATE POTASSIUM
     Indication: Adverse event
     Dosage: UNK
     Route: 048
     Dates: start: 20220331
  39. COTRIMOXAZOLE [Concomitant]
     Active Substance: SULFAMETHOXAZOLE\TRIMETHOPRIM
     Indication: Pneumocystis jirovecii pneumonia
     Dosage: 960 MILLIGRAM, BID, (MONDAY, WEDNESDAY AND FRIDAY, 2 IN 1 DAY)
     Route: 048
     Dates: start: 20220218
  40. COTRIMOXAZOLE [Concomitant]
     Active Substance: SULFAMETHOXAZOLE\TRIMETHOPRIM
     Indication: Prophylaxis
     Dosage: UNK
     Route: 065
  41. LEVOTHYROXINE [Concomitant]
     Active Substance: LEVOTHYROXINE
     Indication: Hypothyroidism
     Dosage: 75 MICROGRAM, QD
     Route: 048
     Dates: start: 20200707
  42. LIPEGFILGRASTIM [Concomitant]
     Active Substance: LIPEGFILGRASTIM
     Indication: Prophylaxis
     Dosage: 6 MILLIGRAM, QD
     Route: 058
     Dates: start: 20220227, end: 20220227
  43. LIPEGFILGRASTIM [Concomitant]
     Active Substance: LIPEGFILGRASTIM
     Dosage: UNK
     Route: 065
  44. ONDANSETRON [Concomitant]
     Active Substance: ONDANSETRON
     Indication: Prophylaxis of nausea and vomiting
     Dosage: 24 MILLIGRAM, 3 PER DAY (8 MG, 3 IN ONE DAY)
     Route: 065
     Dates: start: 20220218
  45. ONDANSETRON [Concomitant]
     Active Substance: ONDANSETRON
     Dosage: UNK
     Route: 065
  46. PIPERACILLIN SODIUM\TAZOBACTAM SODIUM [Concomitant]
     Active Substance: PIPERACILLIN SODIUM\TAZOBACTAM SODIUM
     Indication: Product used for unknown indication
     Dosage: UNK
     Route: 065
  47. PIPERACILLIN SODIUM\TAZOBACTAM SODIUM [Concomitant]
     Active Substance: PIPERACILLIN SODIUM\TAZOBACTAM SODIUM
     Indication: Adverse event
     Dosage: UNK
     Route: 065
     Dates: start: 20220302
  48. ACETAMINOPHEN [Concomitant]
     Active Substance: ACETAMINOPHEN
     Indication: Product used for unknown indication
     Dosage: UNK
     Route: 065
     Dates: start: 20220308
  49. ACETAMINOPHEN [Concomitant]
     Active Substance: ACETAMINOPHEN
     Indication: Adverse event
  50. AMOXICILLIN\CLAVULANIC ACID [Concomitant]
     Active Substance: AMOXICILLIN\CLAVULANIC ACID
     Indication: Product used for unknown indication
     Dosage: UNK
     Route: 065
     Dates: start: 20220331
  51. ZINC OXIDE [Concomitant]
     Active Substance: ZINC OXIDE
     Indication: Product used for unknown indication
     Dosage: UNK
     Route: 065
  52. ANUSOL [BISMUTH OXIDE;BISMUTH SUBGALLATE;MYROXYLON BALSAMUM BALSAM;ZIN [Concomitant]
     Indication: Haemorrhoids
     Dosage: UNK
     Route: 065
     Dates: start: 20220304
  53. MEROPENEM [Concomitant]
     Active Substance: MEROPENEM
     Indication: Proctalgia
     Dosage: UNK
     Route: 065
  54. SULFAMETHOXAZOLE [Concomitant]
     Active Substance: SULFAMETHOXAZOLE
     Indication: Product used for unknown indication
     Dosage: UNK
     Route: 065
  55. KETAMINE [Concomitant]
     Active Substance: KETAMINE
     Indication: Proctalgia
     Dosage: UNK
     Route: 065
  56. CLONIDINE [Concomitant]
     Active Substance: CLONIDINE
     Indication: Proctalgia
     Dosage: UNK
     Route: 065
  57. TEICOPLANIN [Concomitant]
     Active Substance: TEICOPLANIN
     Indication: Proctalgia
     Dosage: UNK
     Route: 065
  58. LIDOCAINE HYDROCHLORIDE [Concomitant]
     Active Substance: DEXTROSE MONOHYDRATE\EPINEPHRINE\EPINEPHRINE BITARTRATE\LIDOCAINE\LIDOCAINE HYDROCHLORIDE\LIDOCAINE
     Indication: Product used for unknown indication
     Dosage: UNK
     Route: 065
  59. POLYETHYLENE GLYCOLS [Concomitant]
     Active Substance: POLYETHYLENE GLYCOLS
     Indication: Proctalgia
     Dosage: UNK
     Route: 065
  60. FENTANYL [Concomitant]
     Active Substance: FENTANYL\FENTANYL CITRATE
     Indication: Proctalgia
     Dosage: UNK
     Route: 065
  61. ZINC SULFATE [Concomitant]
     Active Substance: ZINC SULFATE
     Indication: Haemorrhoids
     Dosage: UNK
     Route: 065
     Dates: start: 20220204
  62. TRIMETHOPRIM [Concomitant]
     Active Substance: TRIMETHOPRIM
     Indication: Product used for unknown indication
     Dosage: UNK
     Route: 065

REACTIONS (16)
  - Febrile neutropenia [Recovered/Resolved]
  - Haemorrhoids [Unknown]
  - Vomiting [Unknown]
  - Accident [Unknown]
  - Back pain [Recovered/Resolved]
  - Crohn^s disease [Recovering/Resolving]
  - Chills [Unknown]
  - Anal inflammation [Unknown]
  - SARS-CoV-2 test negative [Unknown]
  - Neutropenia [Unknown]
  - Pyrexia [Unknown]
  - Proctalgia [Recovered/Resolved]
  - Diarrhoea [Recovering/Resolving]
  - Malaise [Unknown]
  - Pain [Unknown]
  - Body temperature increased [Unknown]

NARRATIVE: CASE EVENT DATE: 20220203
